FAERS Safety Report 5807113-8 (Version None)
Quarter: 2008Q3

REPORT INFORMATION
  Report Type: 
  Country: None (occurrence: None)
  Receive Date: 20080711
  Receipt Date: 20080702
  Transmission Date: 20090109
  Serious: Yes (Life-Threatening)
  Sender: FDA-Public Use
  Company Number: DE-BAYER-200821649GPV

PATIENT
  Sex: Male
  Weight: 68 kg

DRUGS (8)
  1. AVELOX [Suspect]
     Indication: PYREXIA
     Route: 048
     Dates: start: 20080110, end: 20080120
  2. CEFACLOR [Concomitant]
     Indication: PYREXIA
     Route: 048
     Dates: start: 20080107, end: 20080110
  3. CIPROFLOXACIN [Concomitant]
     Indication: PYREXIA
     Dosage: UNIT DOSE: 250 MG
     Route: 048
     Dates: start: 20080103, end: 20080110
  4. ZYPREXA [Concomitant]
     Indication: DRUG USE FOR UNKNOWN INDICATION
     Dosage: TOTAL DAILY DOSE: 5 MG  UNIT DOSE: 2.5 MG
     Route: 065
  5. CARBAMAZEPIN RET. 400 [Concomitant]
     Indication: DRUG USE FOR UNKNOWN INDICATION
     Dosage: UNIT DOSE: 400 MG
     Route: 065
  6. MAGNESIUM [Concomitant]
     Indication: DRUG USE FOR UNKNOWN INDICATION
     Route: 065
  7. CALCIUM [Concomitant]
     Indication: DRUG USE FOR UNKNOWN INDICATION
     Route: 065
  8. MELPERON [Concomitant]
     Indication: DRUG USE FOR UNKNOWN INDICATION
     Dosage: TOTAL DAILY DOSE: 25 MG  UNIT DOSE: 25 MG
     Route: 065

REACTIONS (3)
  - ARTHRALGIA [None]
  - DERMATITIS BULLOUS [None]
  - TRANSAMINASES INCREASED [None]
